FAERS Safety Report 11589468 (Version 3)
Quarter: 2015Q4

REPORT INFORMATION
  Report Type: Spontaneous
  Country: US (occurrence: US)
  Receive Date: 20151002
  Receipt Date: 20151120
  Transmission Date: 20160304
  Serious: Yes (Hospitalization)
  Sender: FDA-Public Use
  Company Number: US-JNJFOC-20150819433

PATIENT
  Age: 45 Year
  Sex: Male
  Weight: 104.33 kg

DRUGS (6)
  1. RISPERDAL [Suspect]
     Active Substance: RISPERIDONE
     Indication: RESTLESSNESS
     Route: 048
     Dates: end: 2013
  2. RISPERDAL [Suspect]
     Active Substance: RISPERIDONE
     Indication: INSOMNIA
     Route: 048
     Dates: start: 200711, end: 2013
  3. RISPERDAL [Suspect]
     Active Substance: RISPERIDONE
     Indication: INSOMNIA
     Dosage: DURING BEDTIME
     Route: 048
     Dates: start: 20080624, end: 20131021
  4. RISPERDAL [Suspect]
     Active Substance: RISPERIDONE
     Indication: RESTLESSNESS
     Dosage: DURING BEDTIME
     Route: 048
     Dates: start: 20080624, end: 20131021
  5. RISPERDAL [Suspect]
     Active Substance: RISPERIDONE
     Indication: INSOMNIA
     Route: 048
     Dates: end: 2013
  6. RISPERDAL [Suspect]
     Active Substance: RISPERIDONE
     Indication: RESTLESSNESS
     Route: 048
     Dates: start: 200711, end: 2013

REACTIONS (13)
  - Imprisonment [Unknown]
  - Dysphagia [Unknown]
  - Weight increased [Recovered/Resolved]
  - Off label use [Unknown]
  - Hospitalisation [Unknown]
  - Adverse event [Unknown]
  - Product use issue [Unknown]
  - Dry mouth [Unknown]
  - Weight decreased [Not Recovered/Not Resolved]
  - Insomnia [Unknown]
  - Increased appetite [Recovered/Resolved]
  - Gynaecomastia [Not Recovered/Not Resolved]
  - Product colour issue [Unknown]

NARRATIVE: CASE EVENT DATE: 200711
